FAERS Safety Report 4941028-2 (Version None)
Quarter: 2006Q1

REPORT INFORMATION
  Report Type: 
  Country: None (occurrence: None)
  Receive Date: 20060313
  Receipt Date: 20040609
  Transmission Date: 20060701
  Serious: Yes (Death)
  Sender: FDA-Public Use
  Company Number: 200512378JP

PATIENT
  Age: 72 Year
  Sex: Male
  Weight: 42 kg

DRUGS (10)
  1. ARAVA [Suspect]
     Indication: RHEUMATOID ARTHRITIS
     Route: 048
     Dates: start: 20031111, end: 20031113
  2. ARAVA [Suspect]
     Route: 048
     Dates: start: 20031114, end: 20040204
  3. MOBIC [Concomitant]
     Indication: RHEUMATOID ARTHRITIS
     Route: 048
  4. PREDONINE [Concomitant]
     Indication: RHEUMATOID ARTHRITIS
     Route: 048
  5. ALANTA [Concomitant]
     Indication: PROPHYLAXIS
     Route: 048
  6. ALANTA [Concomitant]
     Indication: ULCER
     Route: 048
  7. KOLANTYL [Concomitant]
     Indication: PROPHYLAXIS
     Route: 048
  8. KOLANTYL [Concomitant]
     Indication: ULCER
     Route: 048
  9. CRAVIT [Concomitant]
     Indication: BRONCHITIS
     Dosage: DOSE: 3 TABLETS
     Route: 048
     Dates: start: 20040204, end: 20040206
  10. MUCODYNE [Concomitant]
     Indication: BRONCHITIS
     Dosage: DOSE: 3 TABLETS
     Route: 048
     Dates: start: 20040204, end: 20040206

REACTIONS (7)
  - ANAEMIA [None]
  - BRONCHOPNEUMONIA [None]
  - CARDIAC FAILURE [None]
  - CONDITION AGGRAVATED [None]
  - INTERSTITIAL LUNG DISEASE [None]
  - PROTEINURIA [None]
  - RESPIRATORY FAILURE [None]
